FAERS Safety Report 13974913 (Version 2)
Quarter: 2017Q3

REPORT INFORMATION
  Report Type: Spontaneous
  Country: RU (occurrence: RU)
  Receive Date: 20170915
  Receipt Date: 20170928
  Transmission Date: 20171128
  Serious: Yes (Death)
  Sender: FDA-Public Use
  Company Number: RU-ABBVIE-17P-251-2102015-00

PATIENT
  Age: 68 Year
  Sex: Female

DRUGS (2)
  1. RIBAVIRIN. [Concomitant]
     Active Substance: RIBAVIRIN
     Indication: HEPATITIS C
     Dates: start: 201509
  2. VIEKIRA PAK [Suspect]
     Active Substance: DASABUVIR\OMBITASVIR\PARITAPREVIR\RITONAVIR
     Indication: HEPATITIS C
     Dosage: 2 TABS (OMBI 12.5 MG + PARITAP 75 MG + RIT 50 MG) Q DAY; 1 TABLET DASAB 50 MG BID
     Route: 048
     Dates: start: 201509

REACTIONS (2)
  - Coma hepatic [Fatal]
  - Hepatic encephalopathy [Fatal]
